FAERS Safety Report 4603024-4 (Version None)
Quarter: 2005Q1

REPORT INFORMATION
  Report Type: 
  Country: None (occurrence: None)
  Receive Date: 20050307
  Receipt Date: 20050221
  Transmission Date: 20050727
  Serious: Yes (Hospitalization)
  Sender: FDA-Public Use
  Company Number: 2005019062

PATIENT
  Age: 56 Year
  Sex: Female

DRUGS (7)
  1. CLINDAMYCIN HYDROCHLORIDE CAPSULE (CLINDAMYCIN HYDROCHLORIDDE) [Suspect]
     Indication: SUPERINFECTION
     Dosage: ORAL
     Route: 048
     Dates: start: 20040805, end: 20040810
  2. METRONIDAZOLE [Suspect]
     Indication: MYOFASCITIS
     Dosage: ORAL
     Route: 048
     Dates: start: 20040810, end: 20040812
  3. CLAVULIN (CLAVULANATE POTASSIUM, AMOXICILLIN TRIHYDRATE) [Suspect]
     Indication: ILL-DEFINED DISORDER
     Dosage: ORAL
     Route: 048
     Dates: start: 20040810, end: 20040812
  4. PRISTINAMYCIN (PRISTINAMYCIN) [Suspect]
     Indication: SUPERINFECTION
     Dosage: ORAL
     Route: 048
     Dates: start: 20040705, end: 20040805
  5. OFLOXACIN [Suspect]
     Indication: MYOFASCITIS
     Dosage: ORAL
     Route: 048
     Dates: start: 20040810, end: 20040812
  6. FOSFOMYCIN (FOSFOMYCIN) [Suspect]
     Indication: ILL-DEFINED DISORDER
     Dates: start: 20040829, end: 20040831
  7. RIFAMPICIN [Suspect]
     Indication: ILL-DEFINED DISORDER
     Dates: start: 20040829, end: 20040902

REACTIONS (12)
  - ARTHROPOD STING [None]
  - DERMATITIS BULLOUS [None]
  - ERYTHEMA [None]
  - HYPERTHERMIA [None]
  - MYOFASCITIS [None]
  - NIKOLSKY'S SIGN [None]
  - PRURITUS [None]
  - RASH [None]
  - RASH MACULO-PAPULAR [None]
  - SKIN NECROSIS [None]
  - SUPERINFECTION [None]
  - TOXIC SKIN ERUPTION [None]
